FAERS Safety Report 7230015-X (Version None)
Quarter: 2011Q1

REPORT INFORMATION
  Report Type: 
  Country: None (occurrence: None)
  Receive Date: 20110117
  Receipt Date: 20110114
  Transmission Date: 20110831
  Serious: Yes (Other)
  Sender: FDA-Public Use
  Company Number: KR-BAYER-2011-003900

PATIENT
  Age: 73 Year
  Sex: Male

DRUGS (3)
  1. GLUCOBAY [Suspect]
     Dosage: 100 MG, TID
     Route: 048
     Dates: start: 20101101
  2. GLUCOBAY [Suspect]
     Indication: PRODUCT USED FOR UNKNOWN INDICATION
     Dosage: 50 MG, TID
     Route: 048
     Dates: start: 20070101, end: 20101101
  3. ASPIRIN [Suspect]
     Dosage: UNK
     Route: 048
     Dates: start: 20101101

REACTIONS (3)
  - ASPARTATE AMINOTRANSFERASE INCREASED [None]
  - BLOOD ALKALINE PHOSPHATASE INCREASED [None]
  - ALANINE AMINOTRANSFERASE INCREASED [None]
